FAERS Safety Report 9636969 (Version 1)
Quarter: 2013Q4

REPORT INFORMATION
  Report Type: Spontaneous
  Country: US (occurrence: US)
  Receive Date: 20131022
  Receipt Date: 20131022
  Transmission Date: 20140711
  Serious: No
  Sender: FDA-Public Use
  Company Number: US-009507513-1310USA009135

PATIENT
  Age: 77 Year
  Sex: Female

DRUGS (3)
  1. PRILOSEC [Suspect]
     Route: 048
  2. FORADIL [Suspect]
     Indication: LUNG INFECTION
     Dosage: UNK
     Route: 048
     Dates: start: 20131017
  3. FORADIL [Suspect]
     Dosage: 12 MICROGRAM/ONE PUFF, BID
     Route: 055
     Dates: start: 201210

REACTIONS (3)
  - Wrong drug administered [Unknown]
  - Incorrect route of drug administration [Unknown]
  - No adverse event [Unknown]
